FAERS Safety Report 8168335-7 (Version None)
Quarter: 2012Q1

REPORT INFORMATION
  Report Type: 
  Country: None (occurrence: None)
  Receive Date: 20120227
  Receipt Date: 20120223
  Transmission Date: 20120608
  Serious: Yes (Hospitalization, Disabling)
  Sender: FDA-Public Use
  Company Number: US-MERCK-1108USA02799

PATIENT
  Age: 53 Year
  Sex: Female

DRUGS (2)
  1. BONIVA [Suspect]
     Route: 048
     Dates: start: 20080101
  2. FOSAMAX [Suspect]
     Indication: OSTEOPENIA
     Route: 048
     Dates: start: 20040908, end: 20060601

REACTIONS (16)
  - ADJUSTMENT DISORDER [None]
  - DEPRESSION [None]
  - LOW TURNOVER OSTEOPATHY [None]
  - PAIN [None]
  - OSTEOARTHRITIS [None]
  - LUMBAR RADICULOPATHY [None]
  - ANXIETY [None]
  - FOOT DEFORMITY [None]
  - MORTON'S NEUROMA [None]
  - MUSCLE SPASMS [None]
  - FOOT FRACTURE [None]
  - FALL [None]
  - DENTAL CARIES [None]
  - FEMUR FRACTURE [None]
  - OSTEOPOROSIS [None]
  - SPINAL OSTEOARTHRITIS [None]
